FAERS Safety Report 4457570-7 (Version None)
Quarter: 2004Q3

REPORT INFORMATION
  Report Type: 
  Country: None (occurrence: None)
  Receive Date: 20040922
  Receipt Date: 20040917
  Transmission Date: 20050211
  Serious: Yes (Disabling)
  Sender: FDA-Public Use
  Company Number: TCI2004A02641

PATIENT
  Age: 34 Year
  Sex: Female

DRUGS (2)
  1. LEUPROLIDE ACETATE [Suspect]
     Indication: ENDOMETRIOSIS
     Dosage: 1.88 MG (1.88 MG, 1 IN 28 D)
     Route: 058
     Dates: start: 20030816, end: 20040114
  2. LEUPROLIDE ACETATE [Suspect]
     Indication: OVARIAN NEOPLASM
     Dosage: 1.88 MG (1.88 MG, 1 IN 28 D)
     Route: 058
     Dates: start: 20030816, end: 20040114

REACTIONS (13)
  - ACCOMMODATION DISORDER [None]
  - AXILLARY PAIN [None]
  - DISTURBANCE IN ATTENTION [None]
  - DIZZINESS [None]
  - DRY SKIN [None]
  - HOT FLUSH [None]
  - HYPERHIDROSIS [None]
  - IMPAIRED WORK ABILITY [None]
  - MIGRAINE [None]
  - MUSCULOSKELETAL STIFFNESS [None]
  - VISION BLURRED [None]
  - VISUAL ACUITY REDUCED [None]
  - VISUAL FIELD DEFECT [None]
